FAERS Safety Report 13839493 (Version 4)
Quarter: 2018Q3

REPORT INFORMATION
  Report Type: Report from Study
  Country: US (occurrence: US)
  Receive Date: 20170807
  Receipt Date: 20180814
  Transmission Date: 20181010
  Serious: Yes (Life-Threatening, Hospitalization)
  Sender: FDA-Public Use
  Company Number: US-ROCHE-1956870

PATIENT
  Age: 78 Year
  Sex: Male
  Weight: 67.59 kg

DRUGS (38)
  1. CEFTRIAXONE. [Concomitant]
     Active Substance: CEFTRIAXONE
     Indication: SEPSIS
     Route: 042
     Dates: start: 20170629, end: 20170703
  2. METOPROLOL. [Concomitant]
     Active Substance: METOPROLOL
     Route: 042
     Dates: start: 20170627, end: 20170628
  3. METOPROLOL. [Concomitant]
     Active Substance: METOPROLOL
     Route: 042
     Dates: start: 20170627
  4. SODIUM BICARBONATE. [Concomitant]
     Active Substance: SODIUM BICARBONATE
     Route: 048
     Dates: start: 20170628, end: 20170708
  5. SENNOSIDES. [Concomitant]
     Active Substance: SENNOSIDES
     Indication: CONSTIPATION
     Route: 048
     Dates: start: 20170628, end: 20170710
  6. NITROGLYCERIN. [Concomitant]
     Active Substance: NITROGLYCERIN
     Indication: ANGINA PECTORIS
     Route: 060
     Dates: start: 20170626, end: 20170626
  7. INSULIN LISPRO [Concomitant]
     Active Substance: INSULIN LISPRO
     Indication: HYPERGLYCAEMIA
     Dosage: 1?6 UNIT
     Route: 058
     Dates: start: 20170627, end: 20170708
  8. INSULIN LISPRO [Concomitant]
     Active Substance: INSULIN LISPRO
     Dosage: 1?4 UNIT
     Route: 058
     Dates: start: 20170630, end: 20170706
  9. VANCOMYCIN [Concomitant]
     Active Substance: VANCOMYCIN
     Route: 042
     Dates: start: 20170701, end: 20170701
  10. DILTIAZEM. [Concomitant]
     Active Substance: DILTIAZEM
     Route: 042
     Dates: start: 20170626, end: 20170626
  11. CEFAZOLIN [Concomitant]
     Active Substance: CEFAZOLIN
     Indication: SEPSIS
     Route: 042
     Dates: start: 20170703, end: 20170707
  12. GEMCITABINE [Suspect]
     Active Substance: GEMCITABINE\GEMCITABINE HYDROCHLORIDE
     Indication: TRANSITIONAL CELL CARCINOMA
     Dosage: MOST RECENT DOSE (1786 MG): 14/JUN/2017
     Route: 042
     Dates: start: 20170404
  13. METOPROLOL. [Concomitant]
     Active Substance: METOPROLOL
     Indication: TACHYCARDIA
     Route: 042
  14. HYDROMORPHONE [Concomitant]
     Active Substance: HYDROMORPHONE
     Indication: PAIN
     Route: 042
     Dates: start: 20170630, end: 20170630
  15. FENTANYL. [Concomitant]
     Active Substance: FENTANYL
     Indication: PAIN
     Dosage: 25 UNIT: OTHER
     Route: 058
     Dates: start: 20170707, end: 20170707
  16. SODIUM BICARBONATE. [Concomitant]
     Active Substance: SODIUM BICARBONATE
     Indication: METABOLIC ACIDOSIS
     Route: 048
     Dates: start: 20170627, end: 20170628
  17. VANCOMYCIN [Concomitant]
     Active Substance: VANCOMYCIN
     Indication: SEPSIS
     Route: 042
     Dates: start: 20170626, end: 20170628
  18. DOCUSATE SODIUM. [Concomitant]
     Active Substance: DOCUSATE SODIUM
     Indication: CONSTIPATION PROPHYLAXIS
     Route: 048
     Dates: start: 20170626, end: 20170805
  19. DILTIAZEM. [Concomitant]
     Active Substance: DILTIAZEM
     Indication: ATRIAL FIBRILLATION
     Route: 042
     Dates: start: 20170626, end: 20170626
  20. DILTIAZEM. [Concomitant]
     Active Substance: DILTIAZEM
     Route: 042
     Dates: start: 20170626, end: 20170626
  21. AMIODARONE [Concomitant]
     Active Substance: AMIODARONE
     Route: 042
     Dates: start: 20170626, end: 20170626
  22. AMIODARONE [Concomitant]
     Active Substance: AMIODARONE
     Dosage: 0.5 UNIT: OTHER
     Route: 042
     Dates: start: 20170627, end: 20170627
  23. ACETAMINOPHEN. [Concomitant]
     Active Substance: ACETAMINOPHEN
     Indication: PAIN
     Route: 048
     Dates: start: 20170626, end: 20170629
  24. CARBOPLATIN. [Suspect]
     Active Substance: CARBOPLATIN
     Indication: TRANSITIONAL CELL CARCINOMA
     Dosage: MOST RECENT DOSE (283.05 MG): 06/JUN/2017?CONCENTRATION TIME CURVE (AUC) OF 4.5 MG/ML/MIN
     Route: 042
     Dates: start: 20170404
  25. MAGNESIUM SULFATE. [Concomitant]
     Active Substance: MAGNESIUM SULFATE
     Indication: HYPOMAGNESAEMIA
     Route: 042
     Dates: start: 20170627, end: 20170627
  26. HEPARIN [Concomitant]
     Active Substance: HEPARIN SODIUM
     Indication: THROMBOSIS PROPHYLAXIS
     Dosage: 5000 UNIT
     Route: 058
     Dates: start: 20170628, end: 20170711
  27. AMIODARONE [Concomitant]
     Active Substance: AMIODARONE
     Indication: ATRIAL FIBRILLATION
     Dosage: 1 UNIT: OTHER
     Route: 042
     Dates: start: 20170626, end: 20170627
  28. METOPROLOL. [Concomitant]
     Active Substance: METOPROLOL
     Route: 042
     Dates: start: 20170626, end: 20170626
  29. METOPROLOL TARTRATE. [Concomitant]
     Active Substance: METOPROLOL TARTRATE
     Route: 065
  30. MORPHINE [Concomitant]
     Active Substance: MORPHINE
     Indication: PAIN
     Route: 042
     Dates: start: 20170626, end: 20170626
  31. MAGNESIUM SULFATE. [Concomitant]
     Active Substance: MAGNESIUM SULFATE
     Route: 042
     Dates: start: 20170703, end: 20170711
  32. IPRATROPIUM [Concomitant]
     Active Substance: IPRATROPIUM
     Indication: DYSPNOEA
     Route: 065
     Dates: start: 20170627, end: 20170629
  33. CEFEPIME [Concomitant]
     Active Substance: CEFEPIME HYDROCHLORIDE
     Indication: SEPSIS
     Route: 042
     Dates: start: 20170626, end: 20170626
  34. CEFEPIME [Concomitant]
     Active Substance: CEFEPIME HYDROCHLORIDE
     Route: 042
     Dates: start: 20170628, end: 20170628
  35. ATORVASTATIN [Concomitant]
     Active Substance: ATORVASTATIN
     Indication: HYPERCHOLESTEROLAEMIA
     Route: 048
     Dates: start: 20170626
  36. POLYETHYLENE GLYCOL 3350. [Concomitant]
     Active Substance: POLYETHYLENE GLYCOL 3350
     Indication: CONSTIPATION PROPHYLAXIS
     Route: 048
     Dates: start: 20170628, end: 20170711
  37. CEFAZOLIN [Concomitant]
     Active Substance: CEFAZOLIN
     Route: 042
     Dates: start: 20170707, end: 20170727
  38. ATEZOLIZUMAB. [Suspect]
     Active Substance: ATEZOLIZUMAB
     Indication: TRANSITIONAL CELL CARCINOMA
     Dosage: MOST RECENT DOSE: 06/JUN/2017
     Route: 042
     Dates: start: 20170404

REACTIONS (2)
  - Urosepsis [Recovered/Resolved]
  - Neutropenia [Recovered/Resolved]

NARRATIVE: CASE EVENT DATE: 20170626
